FAERS Safety Report 4741573-9 (Version None)
Quarter: 2005Q3

REPORT INFORMATION
  Report Type: 
  Country: None (occurrence: None)
  Receive Date: 20050810
  Receipt Date: 20050801
  Transmission Date: 20060218
  Serious: Yes (Death)
  Sender: FDA-Public Use
  Company Number: US-ABBOTT-05P-163-0307177-00

PATIENT
  Sex: Male

DRUGS (3)
  1. HUMIRA [Suspect]
     Indication: DRUG EXPOSURE DURING PREGNANCY
  2. PENICILLIN [Suspect]
     Indication: DRUG EXPOSURE DURING PREGNANCY
  3. EPINEPHRINE [Concomitant]
     Indication: DRUG EXPOSURE DURING PREGNANCY
     Route: 042
     Dates: start: 20050715, end: 20050715

REACTIONS (2)
  - DRUG EXPOSURE DURING PREGNANCY [None]
  - NEONATAL HYPOXIA [None]
